FAERS Safety Report 12652023 (Version 3)
Quarter: 2016Q4

REPORT INFORMATION
  Report Type: Report from Study
  Country: JP (occurrence: JP)
  Receive Date: 20160815
  Receipt Date: 20161026
  Transmission Date: 20170207
  Serious: Yes (Other)
  Sender: FDA-Public Use
  Company Number: JP-JNJFOC-20160807247

PATIENT
  Age: 5 Year
  Sex: Male
  Weight: 18.4 kg

DRUGS (11)
  1. SULBACTAM SODIUM [Concomitant]
     Active Substance: SULBACTAM SODIUM
     Route: 042
     Dates: start: 20160510, end: 20160512
  2. LASIX [Concomitant]
     Active Substance: FUROSEMIDE
     Indication: PROPHYLAXIS
     Route: 042
     Dates: start: 20160513, end: 20160513
  3. SOLITA-T NO.2 [Concomitant]
     Route: 042
     Dates: end: 20160513
  4. ASPIRIN. [Concomitant]
     Active Substance: ASPIRIN
     Indication: KAWASAKI^S DISEASE
     Dosage: BEFORE ADMINISTARTION OF REC
     Route: 048
     Dates: start: 20160513
  5. ASPIRIN. [Concomitant]
     Active Substance: ASPIRIN
     Indication: KAWASAKI^S DISEASE
     Route: 048
     Dates: start: 20160514
  6. HEPARIN [Concomitant]
     Active Substance: HEPARIN SODIUM
     Route: 042
     Dates: start: 20160510, end: 20160516
  7. REMICADE [Suspect]
     Active Substance: INFLIXIMAB
     Indication: KAWASAKI^S DISEASE
     Route: 042
     Dates: start: 20160509
  8. SALBUTAMOL [Concomitant]
     Active Substance: ALBUTEROL
     Route: 042
  9. MIDAZOLAM [Concomitant]
     Active Substance: MIDAZOLAM\MIDAZOLAM HYDROCHLORIDE
     Indication: SEDATION
     Route: 042
     Dates: start: 20160510, end: 20160510
  10. IMMUNOGLOBULIN HUMAN NORMAL [Concomitant]
     Active Substance: HUMAN IMMUNOGLOBULIN G
     Indication: KAWASAKI^S DISEASE
     Route: 042
     Dates: start: 20160512, end: 20160513
  11. KETALAR [Concomitant]
     Active Substance: KETAMINE HYDROCHLORIDE
     Indication: SEDATION
     Route: 042
     Dates: start: 20160510, end: 20160510

REACTIONS (1)
  - Anaemia [Recovered/Resolved]

NARRATIVE: CASE EVENT DATE: 20160510
